FAERS Safety Report 8133647-X (Version None)
Quarter: 2012Q1

REPORT INFORMATION
  Report Type: 
  Country: None (occurrence: None)
  Receive Date: 20120213
  Receipt Date: 20111122
  Transmission Date: 20120608
  Serious: Yes (Death, Hospitalization)
  Sender: FDA-Public Use
  Company Number: US-ROCHE-682715

PATIENT
  Sex: Female
  Weight: 83.99 kg

DRUGS (15)
  1. 4 LIFE TRANSFER FACTOR [Concomitant]
     Dosage: DRUG NAME: TRANSFER-4-LIFE.
     Route: 048
  2. THERA PLUS VITAMINS [Concomitant]
     Dosage: DRUG NAME; PLUS VITAMIN
     Route: 048
  3. TARCEVA [Suspect]
     Route: 048
     Dates: start: 20090116, end: 20110923
  4. AVASTIN [Suspect]
     Indication: NON-SMALL CELL LUNG CANCER
     Dosage: FORM: 25MG/ML VIALS, INTRAVENOUS DRIP
     Route: 042
     Dates: start: 20080723, end: 20091224
  5. LORTAB [Concomitant]
     Route: 048
  6. LISINOPRIL [Concomitant]
     Route: 048
  7. CIPROFLOXACIN [Concomitant]
     Route: 048
  8. TARCEVA [Suspect]
     Indication: NON-SMALL CELL LUNG CANCER
     Route: 048
  9. LEVAQUIN [Concomitant]
     Route: 048
  10. AVASTIN [Suspect]
     Route: 042
     Dates: start: 20090116, end: 20110418
  11. MINOCYCLINE HCL [Concomitant]
     Dosage: DRUG NAME: MINICYCLINE
     Route: 050
  12. FENTANYL-100 [Concomitant]
     Route: 062
  13. ZOFRAN [Concomitant]
     Route: 042
  14. LOVENOX [Concomitant]
     Route: 058
  15. PHENERGAN [Concomitant]
     Route: 048

REACTIONS (6)
  - BRONCHITIS VIRAL [None]
  - PULMONARY HYPERTENSION [None]
  - PERICARDIAL EFFUSION [None]
  - RASH [None]
  - FUNGAL SEPSIS [None]
  - GASTROOESOPHAGEAL REFLUX DISEASE [None]
